FAERS Safety Report 7031621-8 (Version None)
Quarter: 2010Q4

REPORT INFORMATION
  Report Type: 
  Country: None (occurrence: None)
  Receive Date: 20101006
  Receipt Date: 20101006
  Transmission Date: 20110411
  Serious: Yes (Other)
  Sender: FDA-Public Use
  Company Number: None

PATIENT
  Sex: Female

DRUGS (2)
  1. CREST PRO HEALTH NIGHT REGIMEN TOOTHPASTE [Suspect]
     Indication: DENTAL DISORDER PROPHYLAXIS
  2. CREST PRO HEALTH NIGHT REGIMEN MOUTHWASH [Concomitant]

REACTIONS (3)
  - GINGIVAL BLEEDING [None]
  - STOMATITIS [None]
  - TOOTH DISCOLOURATION [None]
